FAERS Safety Report 8272332-0 (Version None)
Quarter: 2012Q2

REPORT INFORMATION
  Report Type: 
  Country: None (occurrence: None)
  Receive Date: 20120410
  Receipt Date: 20120329
  Transmission Date: 20120825
  Serious: No
  Sender: FDA-Public Use
  Company Number: US-B.I. PHARMACEUTICALS,INC./RIDGEFIELD-2012-BP-05980BP

PATIENT
  Sex: Female

DRUGS (3)
  1. MICARDIS [Suspect]
     Indication: HYPERTENSION
     Dosage: 80 MG
     Route: 048
     Dates: start: 20060101
  2. MICARDIS [Suspect]
     Dosage: 40 MG
     Route: 048
     Dates: end: 20111101
  3. LEVOTHYROXINE SODIUM [Concomitant]
     Indication: HYPOTHYROIDISM
     Dosage: 0.112 MG
     Route: 048
     Dates: start: 20090101

REACTIONS (8)
  - EYE PAIN [None]
  - BLOOD PRESSURE INCREASED [None]
  - HEAD DISCOMFORT [None]
  - HEAD INJURY [None]
  - PAIN IN EXTREMITY [None]
  - EAR PAIN [None]
  - INFLUENZA [None]
  - PRURITUS [None]
